FAERS Safety Report 18956840 (Version 2)
Quarter: 2021Q2

REPORT INFORMATION
  Report Type: Spontaneous
  Country: US (occurrence: US)
  Receive Date: 20210302
  Receipt Date: 20210422
  Transmission Date: 20210717
  Serious: No
  Sender: FDA-Public Use
  Company Number: US-SA-2021SA067471

PATIENT
  Age: 18 Year
  Sex: Male

DRUGS (3)
  1. TRIAMCINOLONE ACETONIDE. [Concomitant]
     Active Substance: TRIAMCINOLONE ACETONIDE
  2. TACROLIMUS. [Concomitant]
     Active Substance: TACROLIMUS
  3. DUPIXENT [Suspect]
     Active Substance: DUPILUMAB
     Indication: ILLNESS
     Dosage: 300 MG, QOW
     Route: 058

REACTIONS (5)
  - Eczema [Unknown]
  - Product use in unapproved indication [Unknown]
  - Dry skin [Unknown]
  - Hypoaesthesia [Unknown]
  - Pruritus [Unknown]

NARRATIVE: CASE EVENT DATE: 2021
